FAERS Safety Report 18156420 (Version 2)
Quarter: 2020Q4

REPORT INFORMATION
  Report Type: Spontaneous
  Country: US (occurrence: US)
  Receive Date: 20200817
  Receipt Date: 20201127
  Transmission Date: 20210113
  Serious: No
  Sender: FDA-Public Use
  Company Number: US-PFIZER INC-2020313354

PATIENT
  Age: 36 Year
  Sex: Female

DRUGS (3)
  1. IBRANCE [Suspect]
     Active Substance: PALBOCICLIB
     Indication: BREAST CANCER FEMALE
     Dosage: 125 MG, CYCLIC (125 MG EVERYDAY [QD] X 21 DAYS EVERY [Q] 28 DAYS)
     Dates: start: 20190622, end: 20200518
  2. IBRANCE [Suspect]
     Active Substance: PALBOCICLIB
     Indication: BREAST CANCER FEMALE
     Dosage: 125 MG, CYCLIC (125 MG EVERYDAY [QD] X 21 DAYS EVERY [Q] 28 DAYS)
     Dates: start: 20200709
  3. IBRANCE [Suspect]
     Active Substance: PALBOCICLIB
     Dosage: 100 MG, CYCLIC (100 MG QD X 21 DAYS)
     Dates: start: 20190622

REACTIONS (3)
  - Pharyngitis streptococcal [Recovered/Resolved]
  - Liver function test increased [Unknown]
  - Dizziness [Unknown]
